FAERS Safety Report 8021751-6 (Version None)
Quarter: 2012Q1

REPORT INFORMATION
  Report Type: 
  Country: None (occurrence: None)
  Receive Date: 20120104
  Receipt Date: 20111220
  Transmission Date: 20120608
  Serious: Yes (Life-Threatening, Other)
  Sender: FDA-Public Use
  Company Number: ES-CELGENEUS-144-50794-11122753

PATIENT
  Sex: Male
  Weight: 90 kg

DRUGS (7)
  1. DILTIAZEM HCL [Concomitant]
     Indication: ANAL FISTULA
     Route: 065
     Dates: start: 20080701
  2. CIPROFLOXACIN [Concomitant]
     Indication: FEBRILE NEUTROPENIA
     Dosage: 1000 MILLIGRAM
     Route: 065
     Dates: start: 20080801, end: 20080807
  3. VIDAZA [Suspect]
     Dosage: 75 MILLIGRAM/SQ. METER
     Route: 065
     Dates: start: 20080728, end: 20080805
  4. VIDAZA [Suspect]
     Dosage: 75 MILLIGRAM/SQ. METER
     Route: 065
     Dates: start: 20081124, end: 20081202
  5. VIDAZA [Suspect]
     Dosage: 75 MILLIGRAM/SQ. METER
     Route: 065
     Dates: start: 20080901, end: 20080909
  6. VIDAZA [Suspect]
     Dosage: 75 MILLIGRAM/SQ. METER
     Route: 065
     Dates: start: 20081027, end: 20081104
  7. BOTOX [Concomitant]
     Indication: ANAL FISTULA
     Route: 065
     Dates: start: 20080701

REACTIONS (1)
  - THROMBOCYTOPENIA [None]
